FAERS Safety Report 14289423 (Version 1)
Quarter: 2017Q4

REPORT INFORMATION
  Report Type: Spontaneous
  Country: US (occurrence: US)
  Receive Date: 20171214
  Receipt Date: 20171214
  Transmission Date: 20180321
  Serious: Yes (Other)
  Sender: FDA-Public Use
  Company Number: None

PATIENT
  Age: 11 Year
  Sex: Male
  Weight: 43.4 kg

DRUGS (1)
  1. ATOMEXETINE [Suspect]
     Active Substance: ATOMOXETINE
     Indication: ATTENTION DEFICIT/HYPERACTIVITY DISORDER
     Route: 048
     Dates: start: 20170605, end: 20170610

REACTIONS (6)
  - Aggression [None]
  - Restlessness [None]
  - Insomnia [None]
  - Mood altered [None]
  - Intentional self-injury [None]
  - Product substitution issue [None]

NARRATIVE: CASE EVENT DATE: 20170613
